FAERS Safety Report 4983199-8 (Version None)
Quarter: 2006Q2

REPORT INFORMATION
  Report Type: 
  Country: None (occurrence: None)
  Receive Date: 20060426
  Receipt Date: 20060410
  Transmission Date: 20061013
  Serious: Yes (Death, Hospitalization)
  Sender: FDA-Public Use
  Company Number: ES-GLAXOSMITHKLINE-B0421221A

PATIENT
  Age: 68 Year
  Sex: Female

DRUGS (2)
  1. VENTOLIN [Suspect]
     Indication: ASTHMA
     Dosage: 1CM3 PER DAY
     Route: 058
  2. MAO INHIBITORS [Concomitant]

REACTIONS (7)
  - BLADDER CATHETERISATION [None]
  - DRUG ADMINISTRATION ERROR [None]
  - PALPITATIONS [None]
  - PRODUCTIVE COUGH [None]
  - PYREXIA [None]
  - TACHYCARDIA [None]
  - TREMOR [None]
